FAERS Safety Report 26193803 (Version 1)
Quarter: 2025Q4

REPORT INFORMATION
  Report Type: Spontaneous
  Country: EU (occurrence: EU)
  Receive Date: 20251224
  Receipt Date: 20251224
  Transmission Date: 20260117
  Serious: Yes (Hospitalization)
  Sender: ACCORD
  Company Number: EU-MLMSERVICE-20251210-PI741178-00043-1

PATIENT
  Age: 54 Year
  Sex: Female

DRUGS (10)
  1. ALLOPURINOL [Suspect]
     Active Substance: ALLOPURINOL
     Indication: Product used for unknown indication
  2. BISOPROLOL [Concomitant]
     Active Substance: BISOPROLOL
  3. CALCITRIOL [Concomitant]
     Active Substance: CALCITRIOL
  4. FUROSEMIDE [Concomitant]
     Active Substance: FUROSEMIDE
  5. ERYTHROPOIETIN [Concomitant]
     Active Substance: ERYTHROPOIETIN
  6. INSULIN NOS [Concomitant]
     Active Substance: INSULIN NOS
  7. LINEZOLID [Concomitant]
     Active Substance: LINEZOLID
  8. PANTOPRAZOLE [Concomitant]
     Active Substance: PANTOPRAZOLE
  9. SODIUM BICARBONATE [Concomitant]
     Active Substance: SODIUM BICARBONATE
  10. SODIUM ZIRCONIUM CYCLOSILICATE [Concomitant]
     Active Substance: SODIUM ZIRCONIUM CYCLOSILICATE

REACTIONS (3)
  - Acute kidney injury [Recovering/Resolving]
  - Hepatitis cholestatic [Recovering/Resolving]
  - Severe cutaneous adverse reaction [Recovering/Resolving]
